FAERS Safety Report 8825668 (Version 2)
Quarter: 2012Q4

REPORT INFORMATION
  Report Type: 
  Country: US (occurrence: US)
  Receive Date: 20121004
  Receipt Date: 20121119
  Transmission Date: 20130627
  Serious: Yes (Other)
  Sender: FDA-Public Use
  Company Number: US-JNJFOC-20120813791

PATIENT
  Age: 64 Year
  Sex: Female
  Weight: 80.74 kg

DRUGS (6)
  1. VISINE TOTALITY MULTI SYMPTOM RELIEF [Suspect]
     Indication: LACRIMATION INCREASED
     Dosage: 1-2 drops
     Route: 047
     Dates: start: 20120803, end: 201208
  2. VISINE TOTALITY MULTI SYMPTOM RELIEF [Suspect]
     Indication: EYE PRURITUS
     Dosage: 1-2 drops
     Route: 047
     Dates: start: 20120803, end: 201208
  3. VISINE TOTALITY MULTI SYMPTOM RELIEF [Suspect]
     Indication: MULTIPLE ALLERGIES
     Dosage: 1-2 drops
     Route: 047
     Dates: start: 20120803, end: 201208
  4. UNKNOWN MEDICATION [Concomitant]
     Route: 065
  5. CLARITIN [Concomitant]
     Indication: MULTIPLE ALLERGIES
     Route: 065
  6. PRILOSEC [Concomitant]
     Indication: GASTROINTESTINAL DISORDER
     Route: 065

REACTIONS (6)
  - Ocular hyperaemia [Recovered/Resolved]
  - Vision blurred [Recovered/Resolved]
  - Lacrimation increased [Recovered/Resolved]
  - Eye irritation [Recovered/Resolved]
  - Off label use [Unknown]
  - Instillation site pain [None]
